FAERS Safety Report 6647950-3 (Version None)
Quarter: 2010Q1

REPORT INFORMATION
  Report Type: 
  Country: None (occurrence: None)
  Receive Date: 20100309
  Receipt Date: 20091204
  Transmission Date: 20100710
  Serious: No
  Sender: FDA-Public Use
  Company Number: 2010SP001797

PATIENT
  Age: 44 Year
  Sex: Male

DRUGS (3)
  1. SAPHRIS [Suspect]
     Dosage: 10 MG; Q12H; SL
     Route: 060
     Dates: start: 20091120, end: 20091123
  2. LAMICTAL CD [Concomitant]
  3. GEODON [Concomitant]

REACTIONS (3)
  - HEART RATE INCREASED [None]
  - HYPOAESTHESIA ORAL [None]
  - PHARYNGEAL HYPOAESTHESIA [None]
